FAERS Safety Report 19082654 (Version 1)
Quarter: 2021Q2

REPORT INFORMATION
  Report Type: Spontaneous
  Country: US (occurrence: US)
  Receive Date: 20210401
  Receipt Date: 20210401
  Transmission Date: 20210717
  Serious: No
  Sender: FDA-Public Use
  Company Number: US-SA-2021SA103882

PATIENT
  Age: 58 Year
  Sex: Female

DRUGS (19)
  1. MELATONIN [Concomitant]
     Active Substance: MELATONIN
  2. PROAIR RESPICLICK [Concomitant]
     Active Substance: ALBUTEROL SULFATE
  3. VITAMIN C [Concomitant]
     Active Substance: ASCORBIC ACID
  4. PROGESTERONE. [Concomitant]
     Active Substance: PROGESTERONE
  5. GABAPENTIN. [Concomitant]
     Active Substance: GABAPENTIN
  6. AZITHROMYCIN ANHYDROUS. [Concomitant]
     Active Substance: AZITHROMYCIN ANHYDROUS
  7. DUPIXENT [Suspect]
     Active Substance: DUPILUMAB
     Dosage: 300 MG, QOW
     Route: 058
  8. ONDANSETRON [Concomitant]
     Active Substance: ONDANSETRON
  9. DUPIXENT [Suspect]
     Active Substance: DUPILUMAB
     Indication: ILLNESS
     Dosage: 600 MG, 1X
     Route: 058
     Dates: start: 202103, end: 202103
  10. BIOTIN [Concomitant]
     Active Substance: BIOTIN
  11. INTRAROSA [Concomitant]
     Active Substance: PRASTERONE
  12. TACROLIMUS. [Concomitant]
     Active Substance: TACROLIMUS
  13. CELECOXIB. [Concomitant]
     Active Substance: CELECOXIB
  14. VITAMIN D3 [Concomitant]
     Active Substance: CHOLECALCIFEROL
  15. ROPINIROLE. [Concomitant]
     Active Substance: ROPINIROLE
  16. FISH OIL [Concomitant]
     Active Substance: FISH OIL
  17. ESTRADIOL. [Concomitant]
     Active Substance: ESTRADIOL
  18. TEMAZEPAM. [Concomitant]
     Active Substance: TEMAZEPAM
  19. CLOBETASOL [Concomitant]
     Active Substance: CLOBETASOL

REACTIONS (5)
  - Injection site warmth [Recovered/Resolved]
  - Injection site mass [Recovered/Resolved]
  - Product use in unapproved indication [Unknown]
  - Injection site reaction [Recovered/Resolved]
  - Injection site pruritus [Recovered/Resolved]

NARRATIVE: CASE EVENT DATE: 20210320
